FAERS Safety Report 23783363 (Version 2)
Quarter: 2025Q3

REPORT INFORMATION
  Report Type: Report from Study
  Country: US (occurrence: US)
  Receive Date: 20240425
  Receipt Date: 20250723
  Transmission Date: 20251020
  Serious: Yes (Hospitalization, Other)
  Sender: TAKEDA
  Company Number: US-TAKEDA-US202028995

PATIENT
  Sex: Female

DRUGS (2)
  1. HUMAN IMMUNOGLOBULIN G\HYALURONIDASE RECOMBINANT HUMAN [Suspect]
     Active Substance: HUMAN IMMUNOGLOBULIN G\HYALURONIDASE (HUMAN RECOMBINANT)
     Indication: Immunodeficiency common variable
  2. HUMAN IMMUNOGLOBULIN G\HYALURONIDASE RECOMBINANT HUMAN [Suspect]
     Active Substance: HUMAN IMMUNOGLOBULIN G\HYALURONIDASE (HUMAN RECOMBINANT)
     Indication: Primary immunodeficiency syndrome
     Dosage: 70 GRAM, Q3WEEKS

REACTIONS (14)
  - Pneumonia [Recovering/Resolving]
  - Fungal sepsis [Recovering/Resolving]
  - Bacterial sepsis [Recovering/Resolving]
  - Sepsis [Unknown]
  - Neoplasm malignant [Unknown]
  - Pulmonary embolism [Unknown]
  - Pyrexia [Recovering/Resolving]
  - Postural orthostatic tachycardia syndrome [Unknown]
  - Sinusitis [Recovering/Resolving]
  - Urinary tract infection [Recovering/Resolving]
  - Product dose omission issue [Unknown]
  - Infusion site pain [Unknown]
  - Infusion site pruritus [Unknown]
  - Infusion site erythema [Unknown]

NARRATIVE: CASE EVENT DATE: 20250101
